FAERS Safety Report 8006590-4 (Version None)
Quarter: 2011Q4

REPORT INFORMATION
  Report Type: 
  Country: None (occurrence: None)
  Receive Date: 20111227
  Receipt Date: 20111214
  Transmission Date: 20120403
  Serious: No
  Sender: FDA-Public Use
  Company Number: US-ELI_LILLY_AND_COMPANY-US201112005587

PATIENT
  Age: 68 Year
  Sex: Female

DRUGS (1)
  1. CYMBALTA [Suspect]
     Dosage: UNK, UNKNOWN

REACTIONS (5)
  - GASTRIC DISORDER [None]
  - BACK PAIN [None]
  - DEPRESSION [None]
  - ARTHRALGIA [None]
  - LIVER DISORDER [None]
